FAERS Safety Report 9113412 (Version 1)
Quarter: 2013Q1

REPORT INFORMATION
  Report Type: Spontaneous
  Country: FR (occurrence: FR)
  Receive Date: 20130131
  Receipt Date: 20130131
  Transmission Date: 20140127
  Serious: Yes (Hospitalization)
  Sender: FDA-Public Use
  Company Number: FR-PFIZER INC-2013031124

PATIENT
  Age: 84 Year
  Sex: Female

DRUGS (9)
  1. ZYVOXID [Suspect]
     Indication: INFECTION
     Dosage: 1200 MG, 1X/DAY
     Route: 048
     Dates: start: 20121121, end: 20121129
  2. RIMACTANE [Suspect]
     Indication: INFECTION
     Dosage: 600 MG, 2X/DAY
     Route: 042
     Dates: start: 20121119, end: 20121128
  3. CORDARONE [Suspect]
     Dosage: 200 MG, 1X/DAY
     Route: 048
     Dates: end: 20121129
  4. INEXIUM [Suspect]
     Dosage: 20 MG, 1X/DAY
     Route: 048
     Dates: end: 20121129
  5. TRIATEC [Suspect]
     Dosage: 2.5 MG, 1X/DAY
     Route: 048
     Dates: end: 20121129
  6. HYDREA [Concomitant]
  7. LEVOTHYROX [Concomitant]
  8. GENTAMYCIN [Concomitant]
     Indication: INFECTION
     Dosage: UNK
     Dates: start: 20121114, end: 20121119
  9. VANCOMYCIN [Concomitant]
     Indication: INFECTION
     Dosage: UNK
     Dates: start: 20121115, end: 20121119

REACTIONS (1)
  - Hyponatraemia [Not Recovered/Not Resolved]
